FAERS Safety Report 19195338 (Version 1)
Quarter: 2021Q2

REPORT INFORMATION
  Report Type: Spontaneous
  Country: US (occurrence: US)
  Receive Date: 20210429
  Receipt Date: 20210429
  Transmission Date: 20210717
  Serious: No
  Sender: FDA-Public Use
  Company Number: None

PATIENT
  Age: 52 Year
  Sex: Female
  Weight: 87.53 kg

DRUGS (8)
  1. TRIAMCINOLONE ACETONIDE 0.1% TOPICAL CREAM [Concomitant]
     Dates: start: 20171204, end: 20200430
  2. VITAMIN D3 2,000 UNITS [Concomitant]
  3. NOVOLOG FLEXPEN U?100 [Concomitant]
     Dates: start: 20190115
  4. ATORVASTATIN 40 MG [Concomitant]
     Active Substance: ATORVASTATIN
     Dates: start: 20190429
  5. LEVEMIR FLEXTOUCH U?100 [Concomitant]
     Dates: start: 20190115, end: 20201213
  6. METFORMIN ER [Suspect]
     Active Substance: METFORMIN HYDROCHLORIDE
     Indication: TYPE 2 DIABETES MELLITUS
     Route: 048
     Dates: start: 20171204, end: 20200224
  7. FLUOXETINE [Concomitant]
     Active Substance: FLUOXETINE HYDROCHLORIDE
     Dates: start: 20190401
  8. JANUVIA [Concomitant]
     Active Substance: SITAGLIPTIN PHOSPHATE
     Dates: start: 20190312

REACTIONS (2)
  - Diarrhoea [None]
  - Abdominal discomfort [None]

NARRATIVE: CASE EVENT DATE: 20200302
